FAERS Safety Report 12528658 (Version 1)
Quarter: 2016Q3

REPORT INFORMATION
  Report Type: Not Available
  Country: FR (occurrence: FR)
  Receive Date: 20160705
  Receipt Date: 20160705
  Transmission Date: 20161109
  Serious: Yes (Life-Threatening, Hospitalization)
  Sender: FDA-Public Use
  Company Number: FR-PURDUE PHARMA-GBR-2016-0037669

PATIENT
  Age: 60 Year
  Sex: Male

DRUGS (15)
  1. OXYCONTIN [Suspect]
     Active Substance: OXYCODONE HYDROCHLORIDE
     Indication: PRODUCT USED FOR UNKNOWN INDICATION
     Dosage: 1 DF, BID
     Route: 048
     Dates: end: 20150412
  2. DAFALGAN [Concomitant]
     Active Substance: ACETAMINOPHEN
  3. HUMIRA [Suspect]
     Active Substance: ADALIMUMAB
     Indication: CAPLAN^S SYNDROME
     Dosage: 45 MG ONCE EVERY 15 DAYS
     Route: 058
  4. VERSATIS [Concomitant]
     Active Substance: LIDOCAINE
  5. VALSARTAN. [Concomitant]
     Active Substance: VALSARTAN
  6. OXYNORM 10 MG, GELULE [Suspect]
     Active Substance: OXYCODONE HYDROCHLORIDE
     Indication: PRODUCT USED FOR UNKNOWN INDICATION
     Dosage: 1 DF, PRN
     Route: 048
     Dates: end: 20150412
  7. CACIT VITAMINE D3 [Concomitant]
     Active Substance: CALCIUM CARBONATE\CHOLECALCIFEROL
  8. IMOVANE [Concomitant]
     Active Substance: ZOPICLONE
  9. LYSANXIA [Concomitant]
     Active Substance: PRAZEPAM
  10. LOXEN [Concomitant]
     Active Substance: NICARDIPINE HYDROCHLORIDE
  11. LYRICA [Concomitant]
     Active Substance: PREGABALIN
  12. XATRAL [Concomitant]
     Active Substance: ALFUZOSIN
  13. EUPANTOL [Concomitant]
     Active Substance: PANTOPRAZOLE SODIUM
  14. ADENURIC [Concomitant]
     Active Substance: FEBUXOSTAT
  15. LAROXYL [Concomitant]
     Active Substance: AMITRIPTYLINE

REACTIONS (1)
  - Acute respiratory distress syndrome [Recovered/Resolved]

NARRATIVE: CASE EVENT DATE: 20150411
